FAERS Safety Report 16040418 (Version 1)
Quarter: 2019Q1

REPORT INFORMATION
  Report Type: Spontaneous
  Country: JP (occurrence: JP)
  Receive Date: 20190306
  Receipt Date: 20190306
  Transmission Date: 20190418
  Serious: Yes (Hospitalization, Other)
  Sender: FDA-Public Use
  Company Number: JP-MYLANLABS-2019M1019635

PATIENT
  Age: 87 Year
  Sex: Male
  Weight: 49.3 kg

DRUGS (4)
  1. CILOSTAZOL. [Concomitant]
     Active Substance: CILOSTAZOL
     Indication: STENOSIS
     Route: 065
  2. CEFTRIAXONE. [Concomitant]
     Active Substance: CEFTRIAXONE
     Indication: PNEUMONIA
     Dosage: ON TWO DIALYSIS DAYS
     Route: 065
  3. LEVOFLOXACIN. [Concomitant]
     Active Substance: LEVOFLOXACIN
     Indication: PNEUMONIA
     Route: 065
  4. PREDNISOLONE. [Suspect]
     Active Substance: PREDNISOLONE
     Indication: PRODUCT USED FOR UNKNOWN INDICATION
     Dosage: FURTHER THE DOSE WAS REDUCED
     Route: 048

REACTIONS (2)
  - Necrosis [Not Recovered/Not Resolved]
  - Arterial thrombosis [Not Recovered/Not Resolved]
